FAERS Safety Report 18085876 (Version 1)
Quarter: 2020Q3

REPORT INFORMATION
  Report Type: Spontaneous
  Country: US (occurrence: US)
  Receive Date: 20200728
  Receipt Date: 20200728
  Transmission Date: 20201103
  Serious: Yes (Death)
  Sender: FDA-Public Use
  Company Number: None

PATIENT
  Age: 89 Year
  Sex: Female
  Weight: 61.4 kg

DRUGS (16)
  1. CONVALESCENT PLASMA [Concomitant]
     Active Substance: HUMAN PLASMA
     Dates: start: 20200709, end: 20200709
  2. CEFEPIME 2 GM IV [Concomitant]
     Dates: start: 20200720, end: 20200722
  3. ENOXAPARIN 60 MG SQ Q 12HR [Concomitant]
     Dates: start: 20200708, end: 20200725
  4. MEROPENEM IV RENALLY ADJUSTED [Concomitant]
     Dates: start: 20200714, end: 20200725
  5. DEXAMETHASONE 6 MG IV ONCE DAILY [Concomitant]
     Dates: start: 20200708, end: 20200718
  6. AMIODARONE IV DRIP [Concomitant]
     Dates: start: 20200716, end: 20200717
  7. AMLODOPINE 5 MG PO BID [Concomitant]
     Dates: start: 20200708, end: 20200714
  8. PRAVASTATIN 20 MG PO ONCE DAILY [Concomitant]
     Dates: start: 20200709, end: 20200718
  9. ASPIRIN 81 MG EC PO ONCE DAILY [Concomitant]
     Dates: start: 20200709, end: 20200718
  10. CLOPIDOGREL 75 MG PO ONCE DAILY [Concomitant]
     Dates: start: 20200709, end: 20200725
  11. CEFTOLOAZANE/TAZOBACTAM 0.75 GM IV [Concomitant]
     Dates: start: 20200725, end: 20200726
  12. EZETIMIBE 10 MG PO DAILY [Concomitant]
     Dates: start: 20200709, end: 20200726
  13. METOPROLOL 25 MG PO Q8HR [Concomitant]
     Dates: start: 20200716, end: 20200718
  14. FAMOTIDINE 20 MG PO DAILY [Concomitant]
     Dates: start: 20200709, end: 20200725
  15. REMDESIVIR. [Suspect]
     Active Substance: REMDESIVIR
     Indication: COVID-19 PNEUMONIA
     Route: 041
     Dates: start: 20200708, end: 20200713
  16. ATORVASTATIN 40 MG PO DAILY AT HS [Concomitant]
     Dates: start: 20200718, end: 20200725

REACTIONS (24)
  - Red blood cell sedimentation rate increased [None]
  - Blood bilirubin increased [None]
  - Pneumonia pseudomonal [None]
  - Hyperphosphatasaemia [None]
  - Blood magnesium increased [None]
  - C-reactive protein increased [None]
  - Somnolence [None]
  - Blood sodium decreased [None]
  - Blood creatinine increased [None]
  - Blood albumin decreased [None]
  - Renal impairment [None]
  - Blood potassium increased [None]
  - Protein total decreased [None]
  - Aspartate aminotransferase increased [None]
  - Blood lactate dehydrogenase increased [None]
  - Blood phosphorus increased [None]
  - White blood cell count increased [None]
  - Blood calcium decreased [None]
  - Refusal of treatment by relative [None]
  - Blood glucose increased [None]
  - Alanine aminotransferase increased [None]
  - Procalcitonin increased [None]
  - Red blood cell count decreased [None]
  - Haemoglobin decreased [None]

NARRATIVE: CASE EVENT DATE: 20200726
